FAERS Safety Report 4889217-X (Version None)
Quarter: 2006Q1

REPORT INFORMATION
  Report Type: 
  Country: None (occurrence: None)
  Receive Date: 20060120
  Receipt Date: 20060120
  Transmission Date: 20060701
  Serious: Yes (Other)
  Sender: FDA-Public Use
  Company Number: None

PATIENT
  Age: 57 Year
  Sex: Male
  Weight: 81.6475 kg

DRUGS (3)
  1. LIPITOR [Suspect]
     Indication: HYPERLIPIDAEMIA
     Dosage: ONCE DAILY BY MOUTH
     Route: 048
     Dates: start: 20051118, end: 20051206
  2. PREVACID [Concomitant]
  3. TEMAZEPAM [Concomitant]

REACTIONS (6)
  - ASTHENIA [None]
  - EXERCISE TOLERANCE DECREASED [None]
  - HYPOAESTHESIA [None]
  - MUSCLE CONTRACTIONS INVOLUNTARY [None]
  - PAIN [None]
  - PARAESTHESIA [None]
